FAERS Safety Report 5613359-4 (Version None)
Quarter: 2008Q1

REPORT INFORMATION
  Report Type: 
  Country: None (occurrence: None)
  Receive Date: 20080129
  Receipt Date: 20080118
  Transmission Date: 20080703
  Serious: Yes (Hospitalization, Other)
  Sender: FDA-Public Use
  Company Number: 2007SP024501

PATIENT
  Age: 23 Year
  Sex: Female
  Weight: 80 kg

DRUGS (2)
  1. PEG-INTRON [Suspect]
     Indication: CHRONIC MYELOID LEUKAEMIA
     Dosage: 50 MCG; QW; SC
     Route: 058
     Dates: start: 20070515
  2. GLEEVEC [Concomitant]

REACTIONS (6)
  - ABORTION INDUCED [None]
  - CONGENITAL ANOMALY [None]
  - DRUG EXPOSURE DURING PREGNANCY [None]
  - HYDRONEPHROSIS [None]
  - KIDNEY MALFORMATION [None]
  - PREGNANCY [None]
